FAERS Safety Report 4534076-8 (Version None)
Quarter: 2004Q4

REPORT INFORMATION
  Report Type: 
  Country: None (occurrence: None)
  Receive Date: 20041214
  Receipt Date: 20040831
  Transmission Date: 20050328
  Serious: No
  Sender: FDA-Public Use
  Company Number: USA040876983

PATIENT
  Age: 67 Year
  Sex: Male
  Weight: 67 kg

DRUGS (2)
  1. CIALIS [Suspect]
     Indication: ERECTILE DYSFUNCTION
     Dosage: 20 MG/1 DAY
     Dates: start: 20040824
  2. PROSCAR [Concomitant]

REACTIONS (1)
  - ORGASM ABNORMAL [None]
